FAERS Safety Report 17660669 (Version 1)
Quarter: 2020Q2

REPORT INFORMATION
  Report Type: Spontaneous
  Country: US (occurrence: US)
  Receive Date: 20200413
  Receipt Date: 20200413
  Transmission Date: 20200713
  Serious: No
  Sender: FDA-Public Use
  Company Number: US-PFIZER INC-2020150215

PATIENT
  Age: 48 Year
  Sex: Female
  Weight: 85.26 kg

DRUGS (2)
  1. GABAPENTIN. [Concomitant]
     Active Substance: GABAPENTIN
     Indication: FIBROMYALGIA
     Dosage: 75 MG, 2X/DAY
     Route: 048
  2. LYRICA [Suspect]
     Active Substance: PREGABALIN
     Indication: FIBROMYALGIA
     Dosage: 75 MG, 2X/DAY (ONE CAPSULE IN THE MORNING AND ONE AT NIGHT BY MOUTH)
     Route: 048
     Dates: start: 201908

REACTIONS (6)
  - Burning sensation [Unknown]
  - Nerve compression [Not Recovered/Not Resolved]
  - Hypoaesthesia [Unknown]
  - Hyperaesthesia [Not Recovered/Not Resolved]
  - Pain [Unknown]
  - Feeling hot [Not Recovered/Not Resolved]

NARRATIVE: CASE EVENT DATE: 201911
